FAERS Safety Report 9188702 (Version 9)
Quarter: 2015Q1

REPORT INFORMATION
  Report Type: Spontaneous
  Country: US (occurrence: US)
  Receive Date: 20130325
  Receipt Date: 20150123
  Transmission Date: 20150721
  Serious: Yes (Hospitalization, Other)
  Sender: FDA-Public Use
  Company Number: US-LUNDBECK-DKLU1078863

PATIENT
  Age: 45 Year
  Sex: Female

DRUGS (9)
  1. LAMICTAL [Concomitant]
     Active Substance: LAMOTRIGINE
     Indication: PRODUCT USED FOR UNKNOWN INDICATION
  2. SABRIL [Suspect]
     Active Substance: VIGABATRIN
     Indication: GENERALISED TONIC-CLONIC SEIZURE
     Route: 048
     Dates: start: 201301
  3. LAMICTAL [Concomitant]
     Active Substance: LAMOTRIGINE
  4. SABRIL [Suspect]
     Active Substance: VIGABATRIN
     Indication: EPILEPSY
     Route: 048
     Dates: start: 201003
  5. CLONAZEPAM. [Concomitant]
     Active Substance: CLONAZEPAM
     Indication: SEIZURE
  6. SABRIL [Suspect]
     Active Substance: VIGABATRIN
     Indication: SEIZURE
     Route: 048
     Dates: start: 201001
  7. SABRIL [Suspect]
     Active Substance: VIGABATRIN
     Indication: EPILEPSY
     Route: 048
     Dates: start: 20100204
  8. TEGRETOL [Concomitant]
     Active Substance: CARBAMAZEPINE
     Indication: PRODUCT USED FOR UNKNOWN INDICATION
  9. SABRIL [Suspect]
     Active Substance: VIGABATRIN
     Indication: SEIZURE
     Route: 048
     Dates: start: 20100204

REACTIONS (12)
  - Liver disorder [Not Recovered/Not Resolved]
  - Fall [Recovered/Resolved]
  - Generalised tonic-clonic seizure [Unknown]
  - Tremor [Not Recovered/Not Resolved]
  - Post procedural complication [Unknown]
  - Unresponsive to stimuli [Unknown]
  - Haematotoxicity [Unknown]
  - Pain [Not Recovered/Not Resolved]
  - Hepatic encephalopathy [Unknown]
  - Disease progression [Not Recovered/Not Resolved]
  - Hepatic cirrhosis [Unknown]
  - Seizure [Unknown]

NARRATIVE: CASE EVENT DATE: 2011
